FAERS Safety Report 8541468-9 (Version None)
Quarter: 2012Q3

REPORT INFORMATION
  Report Type: 
  Country: None (occurrence: None)
  Receive Date: 20120726
  Receipt Date: 20110923
  Transmission Date: 20120928
  Serious: No
  Sender: FDA-Public Use
  Company Number: US-ASTRAZENECA-2011SE57376

PATIENT
  Age: 82 Year
  Sex: Female
  Weight: 49 kg

DRUGS (2)
  1. SEROQUEL XR [Suspect]
     Indication: DEPRESSION
     Route: 048
     Dates: start: 20100901
  2. SEROQUEL XR [Suspect]
     Indication: ANXIETY
     Route: 048
     Dates: start: 20100901

REACTIONS (2)
  - DEMENTIA [None]
  - TARDIVE DYSKINESIA [None]
